FAERS Safety Report 6078438-9 (Version None)
Quarter: 2009Q1

REPORT INFORMATION
  Report Type: 
  Country: None (occurrence: None)
  Receive Date: 20090212
  Receipt Date: 20090129
  Transmission Date: 20090719
  Serious: Yes (Hospitalization)
  Sender: FDA-Public Use
  Company Number: 20090039

PATIENT
  Age: 72 Year
  Sex: Male

DRUGS (2)
  1. DEXFERRUM [Suspect]
     Dosage: INTRAVENOUS
     Route: 042
  2. ENALAPRIL [Concomitant]

REACTIONS (3)
  - ANAPHYLACTOID REACTION [None]
  - PULMONARY OEDEMA [None]
  - UNRESPONSIVE TO STIMULI [None]
